FAERS Safety Report 19817231 (Version 1)
Quarter: 2021Q3

REPORT INFORMATION
  Report Type: Spontaneous
  Country: PL (occurrence: PL)
  Receive Date: 20210910
  Receipt Date: 20210910
  Transmission Date: 20211014
  Serious: Yes (Death)
  Sender: FDA-Public Use
  Company Number: PL-ROCHE-2907220

PATIENT

DRUGS (9)
  1. ACARD [Concomitant]
     Dosage: 75 MG 1X1
  2. PLAVIX [Concomitant]
     Active Substance: CLOPIDOGREL BISULFATE
     Dosage: 75 MG 1X1,
  3. ENCORTON [Concomitant]
     Active Substance: PREDNISONE
     Dosage: 40 MG?20 MG?0,
  4. ENCORTON [Concomitant]
     Active Substance: PREDNISONE
     Dosage: 40 MG?20 MG?0,
  5. MILURIT [Concomitant]
     Active Substance: ALLOPURINOL
     Dosage: 300 MG 1?0?0.
  6. ELIQUIS [Concomitant]
     Active Substance: APIXABAN
     Dosage: 2.5 MG 2X1,
  7. OBINUTUZUMAB. [Suspect]
     Active Substance: OBINUTUZUMAB
     Indication: CHRONIC LYMPHOCYTIC LEUKAEMIA
     Dosage: LAST ADMINISTRATION OF OBINUTUZUMAB WAS ON 21/JUN/2021.
     Route: 042
     Dates: start: 20210611
  8. IPP (POLAND) [Concomitant]
     Dosage: 20 MG 1X1,
  9. ADATAM [Concomitant]
     Dosage: 0.4 MG 0?0?1,

REACTIONS (1)
  - Multiple organ dysfunction syndrome [Fatal]
